FAERS Safety Report 9416770 (Version 4)
Quarter: 2013Q4

REPORT INFORMATION
  Report Type: Spontaneous
  Country: US (occurrence: None)
  Receive Date: 20130719
  Receipt Date: 20131010
  Transmission Date: 20140711
  Serious: Yes (Other)
  Sender: FDA-Public Use
  Company Number: ADR-2013-01179

PATIENT
  Age: 50 Year
  Sex: Male

DRUGS (3)
  1. BACLOFEN [Suspect]
     Indication: MUSCLE SPASTICITY
  2. BUPIVACAINE [Suspect]
  3. DILAUDID (HYDROMORPHONE) [Suspect]

REACTIONS (6)
  - Bedridden [None]
  - Pain [None]
  - Drug ineffective [None]
  - Device damage [None]
  - Complication of device removal [None]
  - General physical health deterioration [None]
